FAERS Safety Report 5912774-9 (Version None)
Quarter: 2008Q4

REPORT INFORMATION
  Report Type: 
  Country: None (occurrence: None)
  Receive Date: 20081008
  Receipt Date: 20080415
  Transmission Date: 20090506
  Serious: No
  Sender: FDA-Public Use
  Company Number: US-ABBOTT-08P-163-0447597-00

PATIENT
  Sex: Male

DRUGS (6)
  1. DEPAKOTE [Suspect]
     Indication: CONVULSION
     Dosage: 4 CAPS IN AM + 4 CAPS IN PM
     Route: 048
  2. LEVETIRACETAM [Concomitant]
     Indication: CONVULSION
     Route: 048
  3. CARBAMAZEPINE [Concomitant]
     Indication: CONVULSION
     Route: 048
  4. VALIUM [Concomitant]
     Indication: CONVULSION
     Route: 054
     Dates: start: 20080317
  5. MACROGOL [Concomitant]
     Indication: CONSTIPATION
     Route: 048
  6. MULTI-VITAMIN [Concomitant]
     Indication: VITAMIN SUPPLEMENTATION
     Dosage: 1 DAILY
     Route: 048
     Dates: start: 20080101

REACTIONS (2)
  - ANTICONVULSANT DRUG LEVEL INCREASED [None]
  - CONVULSION [None]
